FAERS Safety Report 7247938-8 (Version None)
Quarter: 2011Q1

REPORT INFORMATION
  Report Type: 
  Country: None (occurrence: None)
  Receive Date: 20110127
  Receipt Date: 20101129
  Transmission Date: 20110831
  Serious: No
  Sender: FDA-Public Use
  Company Number: US-MYLANLABS-2010S1019425

PATIENT
  Age: 42 Year
  Sex: Female
  Weight: 79.15 kg

DRUGS (3)
  1. BUPROPION HYDROCHLORIDE [Suspect]
     Indication: DEPRESSION
     Route: 048
     Dates: start: 20101018
  2. SYNTHROID [Concomitant]
     Dates: start: 19950101
  3. BUPROPION HYDROCHLORIDE [Suspect]
     Dosage: ONE TABLET IN THE MORNING AND TWO TABLETS IN THE AFTERNOON
     Route: 048
     Dates: start: 20101018

REACTIONS (5)
  - ABDOMINAL PAIN UPPER [None]
  - MALAISE [None]
  - DRY MOUTH [None]
  - DYSGEUSIA [None]
  - ABDOMINAL DISCOMFORT [None]
